FAERS Safety Report 14109641 (Version 6)
Quarter: 2019Q1

REPORT INFORMATION
  Report Type: Spontaneous
  Country: JP (occurrence: JP)
  Receive Date: 20171020
  Receipt Date: 20190214
  Transmission Date: 20190417
  Serious: Yes (Death, Other)
  Sender: FDA-Public Use
  Company Number: JP-ROCHE-2010942

PATIENT
  Age: 60 Year
  Sex: Male
  Weight: 87 kg

DRUGS (7)
  1. FINIBAX [Concomitant]
     Active Substance: DORIPENEM MONOHYDRATE
     Route: 065
     Dates: start: 20160510, end: 20160609
  2. TEICOPLANIN [Concomitant]
     Active Substance: TEICOPLANIN
     Route: 065
     Dates: start: 20160525, end: 20160527
  3. PREDNISOLONE. [Concomitant]
     Active Substance: PREDNISOLONE
     Dosage: DOSAGE IS UNCERTAIN
     Route: 065
     Dates: start: 20160523, end: 20160609
  4. ACTEMRA [Suspect]
     Active Substance: TOCILIZUMAB
     Indication: SYSTEMIC INFLAMMATORY RESPONSE SYNDROME
     Dosage: THE FRACTIONATION DOSE FREQUENCY IS UNCERTAIN. DOSE INTERVAL UNCERTAINTY.
     Route: 041
     Dates: start: 20160523, end: 20160608
  5. METHYLPREDNISOLONE. [Concomitant]
     Active Substance: METHYLPREDNISOLONE
     Dosage: DOSAGE IS UNCERTAIN
     Route: 065
  6. ORGARAN [Concomitant]
     Active Substance: DANAPAROID SODIUM
     Route: 065
     Dates: start: 20160516, end: 20160609
  7. GABEXATE MESILATE [Concomitant]
     Active Substance: GABEXATE MESYLATE
     Route: 065
     Dates: start: 20160519, end: 20160523

REACTIONS (12)
  - Pulmonary fibrosis [Fatal]
  - Haemorrhagic ascites [Not Recovered/Not Resolved]
  - Renal tubular disorder [Fatal]
  - Off label use [Fatal]
  - Bone marrow reticulin fibrosis [Fatal]
  - Blood pressure decreased [Unknown]
  - Thrombotic microangiopathy [Fatal]
  - Respiratory failure [Unknown]
  - Pancreatitis necrotising [Fatal]
  - Abdominal pain [Unknown]
  - Langerhans^ cell histiocytosis [Fatal]
  - Pyrexia [Unknown]

NARRATIVE: CASE EVENT DATE: 20160525
